FAERS Safety Report 13704527 (Version 1)
Quarter: 2017Q2

REPORT INFORMATION
  Report Type: Spontaneous
  Country: US (occurrence: US)
  Receive Date: 20170630
  Receipt Date: 20170630
  Transmission Date: 20170830
  Serious: Yes (Other)
  Sender: FDA-Public Use
  Company Number: US-ASTRAZENECA-2017SE65372

PATIENT
  Age: 51 Year
  Sex: Female

DRUGS (16)
  1. ADRIAMYCIN [Concomitant]
     Active Substance: DOXORUBICIN HYDROCHLORIDE
  2. FULVESTRANT [Suspect]
     Active Substance: FULVESTRANT
     Indication: METASTASES TO BONE
     Dosage: UNKNOWN
     Route: 030
  3. LYNPARZA [Suspect]
     Active Substance: OLAPARIB
     Dosage: UNKNOWN
     Route: 048
  4. CYTOXAN [Concomitant]
     Active Substance: CYCLOPHOSPHAMIDE
  5. EXEMESTANE. [Concomitant]
     Active Substance: EXEMESTANE
  6. TAMOXIFEN [Suspect]
     Active Substance: TAMOXIFEN
     Dosage: UNKNOWN
     Route: 048
  7. CARBOPLATIN. [Concomitant]
     Active Substance: CARBOPLATIN
     Dates: start: 201409
  8. TAMOXIFEN [Suspect]
     Active Substance: TAMOXIFEN
     Route: 048
     Dates: start: 201404
  9. CAPECITABINE. [Concomitant]
     Active Substance: CAPECITABINE
     Dates: start: 201605
  10. ANASTROZOLE. [Suspect]
     Active Substance: ANASTROZOLE
     Route: 048
  11. LETROZOLE. [Concomitant]
     Active Substance: LETROZOLE
     Dates: start: 201511
  12. EVEROLIMUS [Concomitant]
     Active Substance: EVEROLIMUS
     Dates: start: 201612
  13. TAXOL [Concomitant]
     Active Substance: PACLITAXEL
     Dates: start: 201409
  14. DENOSUMAB [Concomitant]
     Active Substance: DENOSUMAB
  15. FULVESTRANT [Suspect]
     Active Substance: FULVESTRANT
     Indication: METASTASES TO BONE
     Dosage: UNKNOWN
     Route: 030
  16. PALBOCICLIB [Suspect]
     Active Substance: PALBOCICLIB
     Route: 048

REACTIONS (3)
  - Metastases to liver [None]
  - Metastases to lymph nodes [None]
  - Malignant neoplasm progression [Unknown]
